FAERS Safety Report 5914999-5 (Version None)
Quarter: 2008Q4

REPORT INFORMATION
  Report Type: 
  Country: None (occurrence: None)
  Receive Date: 20081008
  Receipt Date: 20080924
  Transmission Date: 20090506
  Serious: Yes (Death)
  Sender: FDA-Public Use
  Company Number: US024268

PATIENT
  Age: 51 Year
  Sex: Male
  Weight: 108.8633 kg

DRUGS (13)
  1. ACTIQ [Suspect]
     Indication: BACK PAIN
     Dosage: 800 UG UP TO FOUR LOZENGES DAILY PRN BUCCAL
     Route: 002
     Dates: start: 20040129, end: 20040225
  2. ACTIQ [Suspect]
     Indication: NECK PAIN
     Dosage: 800 UG UP TO FOUR LOZENGES DAILY PRN BUCCAL
     Route: 002
     Dates: start: 20040129, end: 20040225
  3. ACTIQ [Suspect]
     Indication: BACK PAIN
     Dosage: 1200 UG UP TO 4 LOZENGES DAILY PRN BUCCAL
     Route: 002
     Dates: start: 20040226, end: 20040914
  4. ACTIQ [Suspect]
     Indication: NECK PAIN
     Dosage: 1200 UG UP TO 4 LOZENGES DAILY PRN BUCCAL
     Route: 002
     Dates: start: 20040226, end: 20040914
  5. ACTIQ [Suspect]
     Indication: BACK PAIN
     Dosage: 1600 UG UP TO 4 LOZENGES DAILY PRN BUCCAL
     Route: 002
     Dates: start: 20040915, end: 20050401
  6. ACTIQ [Suspect]
     Indication: NECK PAIN
     Dosage: 1600 UG UP TO 4 LOZENGES DAILY PRN BUCCAL
     Route: 002
     Dates: start: 20040915, end: 20050401
  7. ACTIQ [Suspect]
     Indication: BACK PAIN
     Dosage: 1600 UG UP TO 4 LOZENGES DAILY PRN BUCCAL
     Route: 002
     Dates: start: 20060428, end: 20061215
  8. ACTIQ [Suspect]
     Indication: NECK PAIN
     Dosage: 1600 UG UP TO 4 LOZENGES DAILY PRN BUCCAL
     Route: 002
     Dates: start: 20060428, end: 20061215
  9. DURAGESIC-100 [Suspect]
     Indication: PAIN
     Dosage: TRANSDERMAL
     Route: 062
     Dates: start: 20031104
  10. DURAGESIC-100 [Suspect]
     Indication: PAIN
     Dosage: TRANSDERMAL
     Route: 062
     Dates: start: 20060428, end: 20061215
  11. BUPROPION HCL [Suspect]
     Dates: end: 20061215
  12. METOPROLOL TARTRATE [Suspect]
     Dates: end: 20061215
  13. SERTRALINE [Suspect]
     Dates: end: 20061215

REACTIONS (12)
  - ALCOHOL USE [None]
  - CEREBROVASCULAR ACCIDENT [None]
  - COMA [None]
  - DEPENDENCE [None]
  - DEPRESSION [None]
  - DIALYSIS [None]
  - MULTI-ORGAN FAILURE [None]
  - MYOCARDIAL INFARCTION [None]
  - OVERDOSE [None]
  - PULSE ABSENT [None]
  - TOOTH LOSS [None]
  - UNRESPONSIVE TO STIMULI [None]
